FAERS Safety Report 17530453 (Version 1)
Quarter: 2020Q1

REPORT INFORMATION
  Report Type: Spontaneous
  Country: GB (occurrence: GB)
  Receive Date: 20200312
  Receipt Date: 20200312
  Transmission Date: 20200409
  Serious: Yes (Other)
  Sender: FDA-Public Use
  Company Number: GB-TEVA-2020-GB-1197006

PATIENT
  Age: 59 Year
  Sex: Female
  Weight: 79 kg

DRUGS (2)
  1. TRAMADOL. [Suspect]
     Active Substance: TRAMADOL
     Dosage: UNIT DOSE : 50 MILLIGRAM, TAKE ONE OR TWO EVERY FOUR TO SIX HOUR...
     Dates: start: 20191206, end: 20200103
  2. LEVOTHYROXINE. [Concomitant]
     Active Substance: LEVOTHYROXINE
     Dosage: 1 DOSAGE FORMS DAILY; EACH MORNING.
     Dates: start: 20190425

REACTIONS (2)
  - Abdominal discomfort [Unknown]
  - Vomiting [Unknown]

NARRATIVE: CASE EVENT DATE: 20200122
